FAERS Safety Report 12686444 (Version 2)
Quarter: 2016Q3

REPORT INFORMATION
  Report Type: Spontaneous
  Country: US (occurrence: US)
  Receive Date: 20160825
  Receipt Date: 20160912
  Transmission Date: 20161109
  Serious: No
  Sender: FDA-Public Use
  Company Number: US-JAZZ-2016-US-007075

PATIENT
  Sex: Male

DRUGS (21)
  1. NIACIN ER [Concomitant]
     Active Substance: NIACIN
  2. OMEGA 3 FISH OIL [Concomitant]
     Active Substance: FISH OIL\OMEGA-3 FATTY ACIDS
  3. VITAMIN B2 [Concomitant]
     Active Substance: RIBOFLAVIN
  4. XYREM [Suspect]
     Active Substance: SODIUM OXYBATE
     Indication: NARCOLEPSY
     Dosage: 2.25 G, BID
     Route: 048
     Dates: start: 201002, end: 201002
  5. ZANTAC [Concomitant]
     Active Substance: RANITIDINE HYDROCHLORIDE
  6. XYREM [Suspect]
     Active Substance: SODIUM OXYBATE
     Dosage: 3 G, BID
     Route: 048
     Dates: start: 201506
  7. PROBIOTIC COMPLEX [Concomitant]
  8. TRANSDERM SCOP [Concomitant]
     Active Substance: SCOPOLAMINE
  9. VITAMIN D3 [Concomitant]
     Active Substance: CHOLECALCIFEROL
  10. PAXIL CR [Concomitant]
     Active Substance: PAROXETINE HYDROCHLORIDE
  11. DIAZEPAM. [Concomitant]
     Active Substance: DIAZEPAM
  12. COENZYME Q10 [Concomitant]
     Active Substance: UBIDECARENONE
  13. TURMERIC [Concomitant]
     Active Substance: TURMERIC
  14. METRONIDAZOLE. [Concomitant]
     Active Substance: METRONIDAZOLE
  15. VALPROIC ACID. [Concomitant]
     Active Substance: VALPROIC ACID
  16. ZOLPIDEM TARTRATE. [Concomitant]
     Active Substance: ZOLPIDEM TARTRATE
  17. XYREM [Suspect]
     Active Substance: SODIUM OXYBATE
     Dosage: DOSE ADJUSTMENTS
     Route: 048
  18. CIPRO [Concomitant]
     Active Substance: CIPROFLOXACIN HYDROCHLORIDE
  19. ESZOPICLONE. [Concomitant]
     Active Substance: ESZOPICLONE
  20. ZALEPLON. [Concomitant]
     Active Substance: ZALEPLON
  21. VITAMIN E [Concomitant]
     Active Substance: .ALPHA.-TOCOPHEROL

REACTIONS (3)
  - Anxiety [Unknown]
  - Intentional product use issue [Unknown]
  - Wrong technique in product usage process [Unknown]
